FAERS Safety Report 7777640-5 (Version None)
Quarter: 2011Q3

REPORT INFORMATION
  Report Type: 
  Country: None (occurrence: None)
  Receive Date: 20110926
  Receipt Date: 20110919
  Transmission Date: 20111222
  Serious: Yes (Other)
  Sender: FDA-Public Use
  Company Number: US-AMGEN-USASP2011048333

PATIENT
  Age: 68 Year
  Sex: Female

DRUGS (1)
  1. ENBREL [Suspect]
     Indication: RHEUMATOID ARTHRITIS
     Dosage: 50 MG, QWK
     Dates: start: 20110511

REACTIONS (9)
  - LOSS OF CONSCIOUSNESS [None]
  - BACK PAIN [None]
  - INJECTION SITE HAEMATOMA [None]
  - FALL [None]
  - NECK PAIN [None]
  - CONCUSSION [None]
  - MUSCULOSKELETAL PAIN [None]
  - HEAD INJURY [None]
  - WOUND [None]
